FAERS Safety Report 6297962-7 (Version None)
Quarter: 2009Q3

REPORT INFORMATION
  Report Type: 
  Country: None (occurrence: None)
  Receive Date: 20090805
  Receipt Date: 20090804
  Transmission Date: 20100115
  Serious: Yes (Hospitalization)
  Sender: FDA-Public Use
  Company Number: A0800251A

PATIENT
  Age: 48 Year
  Sex: Male

DRUGS (2)
  1. AVANDIA [Suspect]
     Dosage: 4MG TWICE PER DAY
     Dates: start: 20040801, end: 20050201
  2. AVANDAMET [Suspect]
     Dates: start: 20040801, end: 20050201

REACTIONS (2)
  - ERECTILE DYSFUNCTION [None]
  - MYOCARDIAL INFARCTION [None]
